FAERS Safety Report 8989629 (Version 1)
Quarter: 2012Q4

REPORT INFORMATION
  Report Type: 
  Country: US (occurrence: US)
  Receive Date: 20121228
  Receipt Date: 20121228
  Transmission Date: 20130627
  Serious: No
  Sender: FDA-Public Use
  Company Number: US-009507513-1212USA006782

PATIENT
  Sex: Female

DRUGS (2)
  1. PEGINTRON [Suspect]
     Indication: HEPATITIS C
     Dosage: UNK
     Dates: start: 20121129
  2. RIBAVIRIN [Suspect]
     Dosage: UNK
     Route: 048
     Dates: start: 20121129

REACTIONS (14)
  - Asthenia [Unknown]
  - Ocular icterus [Unknown]
  - Headache [Unknown]
  - Asthenia [Unknown]
  - Somnolence [Unknown]
  - Depression [Unknown]
  - Chromaturia [Unknown]
  - Abasia [Unknown]
  - Dizziness [Unknown]
  - Dehydration [Unknown]
  - Thirst [Unknown]
  - Blood glucose abnormal [Unknown]
  - Decreased appetite [Unknown]
  - Amnesia [Unknown]
